FAERS Safety Report 8818632 (Version 1)
Quarter: 2012Q4

REPORT INFORMATION
  Report Type: 
  Country: US (occurrence: US)
  Receive Date: 20121001
  Receipt Date: 20121001
  Transmission Date: 20130627
  Serious: Yes (Death)
  Sender: FDA-Public Use
  Company Number: US-ROCHE-1137193

PATIENT
  Sex: Male
  Weight: 113.99 kg

DRUGS (11)
  1. AVASTIN [Suspect]
     Indication: ANAPLASTIC ASTROCYTOMA
     Route: 042
     Dates: start: 20110303, end: 20110715
  2. XELODA [Suspect]
     Indication: BRAIN NEOPLASM
     Route: 048
     Dates: start: 20110418, end: 20111101
  3. NORVASC [Concomitant]
     Indication: HYPERTENSION
     Route: 048
     Dates: start: 20110324, end: 20111103
  4. DEXAMETHASONE [Concomitant]
     Indication: BRAIN NEOPLASM
     Route: 048
     Dates: start: 20110708, end: 20111103
  5. CELEBREX [Concomitant]
     Indication: BRAIN NEOPLASM
     Route: 048
     Dates: start: 20110708, end: 20111103
  6. ALDACTONE [Concomitant]
     Indication: HYPERTENSION
     Route: 048
     Dates: start: 20110323, end: 20111103
  7. CITALOPRAM [Concomitant]
     Indication: CONVULSION
     Route: 048
  8. CARBAMAZEPINE [Concomitant]
     Indication: CONVULSION
     Route: 048
     Dates: start: 20110222
  9. VALPROIC ACID [Concomitant]
     Indication: CONVULSION
     Route: 048
     Dates: start: 20110222, end: 20111103
  10. TRAZODONE [Concomitant]
     Indication: INSOMNIA
     Route: 048
     Dates: start: 20110222, end: 20111103
  11. SCOPOLAMINE HYDROBROMIDE [Concomitant]
     Dosage: indication: ANTISIALAGOGUE
     Route: 065
     Dates: start: 20110222, end: 20111103

REACTIONS (2)
  - Death [Fatal]
  - Hypertension [Recovered/Resolved]
